FAERS Safety Report 18417675 (Version 1)
Quarter: 2020Q4

REPORT INFORMATION
  Report Type: Spontaneous
  Country: US (occurrence: US)
  Receive Date: 20201022
  Receipt Date: 20201022
  Transmission Date: 20210114
  Serious: No
  Sender: FDA-Public Use
  Company Number: US-SEATTLE GENETICS-2020SGN03641

PATIENT
  Age: 64 Year
  Sex: Female

DRUGS (2)
  1. CAPECITABINE. [Concomitant]
     Active Substance: CAPECITABINE
     Indication: BREAST CANCER FEMALE
  2. TUKYSA [Suspect]
     Active Substance: TUCATINIB
     Indication: BREAST CANCER FEMALE
     Dosage: UNK, BID

REACTIONS (12)
  - Dizziness [Unknown]
  - Constipation [Unknown]
  - Muscle spasms [Unknown]
  - Nausea [Unknown]
  - Biopsy [Unknown]
  - Vomiting [Unknown]
  - Unevaluable event [Unknown]
  - Benign hepatic neoplasm [Unknown]
  - Faeces hard [Unknown]
  - Memory impairment [Unknown]
  - Neuropathy peripheral [Unknown]
  - Product dose omission issue [Unknown]

NARRATIVE: CASE EVENT DATE: 20200813
